FAERS Safety Report 6866966-5 (Version None)
Quarter: 2010Q3

REPORT INFORMATION
  Report Type: 
  Country: None (occurrence: None)
  Receive Date: 20100722
  Receipt Date: 20100722
  Transmission Date: 20110219
  Serious: No
  Sender: FDA-Public Use
  Company Number: None

PATIENT
  Sex: Female
  Weight: 58.9676 kg

DRUGS (1)
  1. SYNTHROID [Suspect]
     Dosage: 0.15 MG - 150 MCG EVERY DAY
     Dates: start: 20030801

REACTIONS (7)
  - BREAST PAIN [None]
  - CONSTIPATION [None]
  - DRY MOUTH [None]
  - HEADACHE [None]
  - HOT FLUSH [None]
  - HYPERHIDROSIS [None]
  - TREMOR [None]
